FAERS Safety Report 15422840 (Version 1)
Quarter: 2018Q3

REPORT INFORMATION
  Report Type: Report from Study
  Country: IT (occurrence: IT)
  Receive Date: 20180925
  Receipt Date: 20180925
  Transmission Date: 20181010
  Serious: Yes (Other)
  Sender: FDA-Public Use
  Company Number: IT-TEVA-2018-IT-955617

PATIENT
  Age: 48 Year
  Sex: Female

DRUGS (4)
  1. PREGABALIN. [Interacting]
     Active Substance: PREGABALIN
     Dosage: 1 DOSAGE FORMS DAILY;
     Route: 048
  2. VALIUM [Interacting]
     Active Substance: DIAZEPAM
     Route: 048
  3. SEROQUEL [Interacting]
     Active Substance: QUETIAPINE FUMARATE
     Dosage: 400 MILLIGRAM DAILY;
     Route: 048
  4. GABAPENTIN. [Suspect]
     Active Substance: GABAPENTIN
     Dosage: 1 DOSAGE FORMS DAILY;
     Route: 048

REACTIONS (3)
  - Intentional overdose [Unknown]
  - Alcohol interaction [Unknown]
  - Sopor [Unknown]

NARRATIVE: CASE EVENT DATE: 20180808
